FAERS Safety Report 4699629-5 (Version None)
Quarter: 2005Q2

REPORT INFORMATION
  Report Type: 
  Country: None (occurrence: None)
  Receive Date: 20050624
  Receipt Date: 20050518
  Transmission Date: 20051028
  Serious: Yes (Death)
  Sender: FDA-Public Use
  Company Number: PHBS2005JP07077

PATIENT
  Age: 63 Year
  Sex: Female

DRUGS (2)
  1. STEROIDS NOS [Suspect]
     Dosage: PULSE THERAPY
     Route: 065
  2. NEORAL [Suspect]
     Indication: LUPUS NEPHRITIS
     Dosage: 140 MG/D
     Route: 048
     Dates: start: 20040609, end: 20040612

REACTIONS (5)
  - DISSEMINATED TUBERCULOSIS [None]
  - DYSPNOEA [None]
  - GASTROINTESTINAL HAEMORRHAGE [None]
  - HISTIOCYTOSIS HAEMATOPHAGIC [None]
  - SHOCK [None]
